FAERS Safety Report 4744865-2 (Version None)
Quarter: 2005Q3

REPORT INFORMATION
  Report Type: 
  Country: None (occurrence: None)
  Receive Date: 20050815
  Receipt Date: 20050809
  Transmission Date: 20060218
  Serious: Yes (Hospitalization, Other)
  Sender: FDA-Public Use
  Company Number: GB-GLAXOSMITHKLINE-B0390238A

PATIENT
  Sex: Female

DRUGS (8)
  1. SEROXAT [Suspect]
     Indication: DEPRESSION
     Route: 048
     Dates: start: 20000101, end: 20040101
  2. VENTODISKS [Concomitant]
  3. BECODISKS [Concomitant]
  4. FUROSEMIDE [Concomitant]
     Dosage: 40MG PER DAY
     Route: 048
  5. FEXOFENADINE HCL [Concomitant]
     Dosage: 120MG PER DAY
     Route: 048
  6. PANTOPRAZOLE [Concomitant]
     Dosage: 40MG PER DAY
     Route: 048
  7. PHYLLOCONTIN [Concomitant]
     Dosage: 225MG PER DAY
     Route: 065
  8. PREMARIN [Concomitant]
     Dosage: 625MCG PER DAY
     Route: 065

REACTIONS (2)
  - MANIA [None]
  - MENTAL DISORDER [None]
